FAERS Safety Report 4844960-3 (Version None)
Quarter: 2005Q4

REPORT INFORMATION
  Report Type: 
  Country: None (occurrence: None)
  Receive Date: 20051129
  Receipt Date: 20051115
  Transmission Date: 20060501
  Serious: Yes (Other)
  Sender: FDA-Public Use
  Company Number: 2005156954

PATIENT
  Sex: Female

DRUGS (3)
  1. ZYVOX [Suspect]
     Indication: STAPHYLOCOCCAL INFECTION
     Dosage: INTRAVENOUS
     Route: 042
     Dates: start: 20051030, end: 20051114
  2. CYCLOPHOSPHAMIDE [Concomitant]
  3. UNSPECIFIED TREATMENTS (ALL OTHER THERAPEUTIC PRODUCTS) [Concomitant]

REACTIONS (3)
  - HYPERCALCAEMIA [None]
  - METABOLIC ACIDOSIS [None]
  - REFUSAL OF TREATMENT BY PATIENT [None]
